FAERS Safety Report 4401092-6 (Version None)
Quarter: 2004Q3

REPORT INFORMATION
  Report Type: 
  Country: None (occurrence: None)
  Receive Date: 20040907
  Receipt Date: 20031027
  Transmission Date: 20050211
  Serious: Yes (Hospitalization)
  Sender: FDA-Public Use
  Company Number: US-BRISTOL-MYERS SQUIBB COMPANY-12419552

PATIENT
  Age: 50 Year
  Sex: Female

DRUGS (1)
  1. COUMADIN [Suspect]
     Dosage: POST DISCHARGE INCREASE TO: 2 TABS OF 4 MG FOR A DOSE OF 8 MG/DAY
     Route: 048
     Dates: start: 20031002

REACTIONS (2)
  - DRUG EFFECT DECREASED [None]
  - THROMBOSIS [None]
